FAERS Safety Report 7886483-3 (Version None)
Quarter: 2011Q4

REPORT INFORMATION
  Report Type: 
  Country: None (occurrence: None)
  Receive Date: 20111102
  Receipt Date: 20110707
  Transmission Date: 20120403
  Serious: No
  Sender: FDA-Public Use
  Company Number: US-AMGEN-USASP2011034512

PATIENT
  Age: 54 Year
  Sex: Female
  Weight: 62.132 kg

DRUGS (12)
  1. HYDROXYCHLOROQUINE SULFATE [Concomitant]
     Dosage: 200 MG, UNK
     Route: 048
  2. FLONASE [Concomitant]
     Route: 045
  3. VITAMIN E                          /00110501/ [Concomitant]
     Dosage: 1000 IU, UNK
     Route: 048
  4. ENBREL [Suspect]
     Indication: PRODUCT USED FOR UNKNOWN INDICATION
     Dosage: 50 MG, QWK
     Route: 058
  5. FOLIC ACID [Concomitant]
     Dosage: 1 MG, UNK
     Route: 048
  6. VIT C FRX [Concomitant]
     Dosage: 500 MG, UNK
     Route: 048
  7. CELEBREX [Concomitant]
     Dosage: 200 MG, UNK
     Route: 048
  8. AZELASTINE                         /00884002/ [Concomitant]
     Dosage: .1 %, UNK
  9. SUPER B COMPLEX                    /01995301/ [Concomitant]
     Route: 048
  10. FLAXSEED OIL [Concomitant]
  11. METHOTREXATE [Concomitant]
     Dosage: 2.5 MG, UNK
     Route: 048
  12. OMEGA 3                            /00931501/ [Concomitant]
     Dosage: 1000 MG, UNK
     Route: 048

REACTIONS (2)
  - PULMONARY CONGESTION [None]
  - SPUTUM DISCOLOURED [None]
